FAERS Safety Report 7120582-9 (Version None)
Quarter: 2010Q4

REPORT INFORMATION
  Report Type: 
  Country: None (occurrence: None)
  Receive Date: 20101122
  Receipt Date: 20101122
  Transmission Date: 20110411
  Serious: Yes (Other)
  Sender: FDA-Public Use
  Company Number: None

PATIENT
  Age: 80 Year
  Sex: Female
  Weight: 52.1637 kg

DRUGS (1)
  1. FOSAMAX [Suspect]
     Dosage: 70MG Q WK PO
     Route: 048
     Dates: start: 20080611, end: 20100901

REACTIONS (2)
  - ARTHRALGIA [None]
  - MOBILITY DECREASED [None]
